FAERS Safety Report 4882854-8 (Version None)
Quarter: 2005Q4

REPORT INFORMATION
  Report Type: 
  Country: None (occurrence: None)
  Receive Date: 20051201
  Receipt Date: 20050927
  Transmission Date: 20060501
  Serious: No
  Sender: FDA-Public Use
  Company Number: 2005PV002547

PATIENT
  Age: 52 Year
  Sex: Female
  Weight: 99.7913 kg

DRUGS (4)
  1. BYETTA [Suspect]
     Indication: DIABETES MELLITUS NON-INSULIN-DEPENDENT
     Dosage: 5 MCG;QD;SC
     Route: 058
     Dates: start: 20050922
  2. METFORMIN HCL [Concomitant]
  3. BELLAMINE-S [Concomitant]
  4. AVANDAMET [Concomitant]

REACTIONS (3)
  - EYE PAIN [None]
  - FEELING JITTERY [None]
  - NERVOUSNESS [None]
